FAERS Safety Report 5942252-2 (Version None)
Quarter: 2008Q4

REPORT INFORMATION
  Report Type: 
  Country: None (occurrence: None)
  Receive Date: 20081105
  Receipt Date: 20081027
  Transmission Date: 20090506
  Serious: Yes (Death)
  Sender: FDA-Public Use
  Company Number: FR-ABBOTT-08P-056-0483644-00

PATIENT
  Sex: Male
  Weight: 72 kg

DRUGS (4)
  1. RITONAVIR SOFT GELATIN CAPSULES [Suspect]
     Indication: HIV INFECTION
     Route: 048
     Dates: start: 20020117
  2. TIPRANAVIR [Concomitant]
     Indication: HIV INFECTION
     Route: 048
     Dates: start: 20051204
  3. ENFUVIRTIDE [Concomitant]
     Indication: HIV INFECTION
     Route: 058
     Dates: start: 20051204
  4. EMTRICITABINE [Concomitant]
     Indication: HIV INFECTION
     Dosage: 245/200
     Route: 048
     Dates: start: 20050815

REACTIONS (2)
  - DISEASE COMPLICATION [None]
  - LYMPHOMA [None]
